FAERS Safety Report 4518076-X (Version None)
Quarter: 2004Q4

REPORT INFORMATION
  Report Type: 
  Country: None (occurrence: None)
  Receive Date: 20041203
  Receipt Date: 20041124
  Transmission Date: 20050328
  Serious: Yes (Hospitalization)
  Sender: FDA-Public Use
  Company Number: GB-GLAXOSMITHKLINE-B0358058A

PATIENT
  Age: 61 Year
  Sex: Male
  Weight: 69.85 kg

DRUGS (2)
  1. ZYBAN [Suspect]
     Indication: SMOKING CESSATION THERAPY
     Dosage: 150MG PER DAY
     Route: 048
     Dates: start: 20041115, end: 20041115
  2. PRAVASTATIN [Concomitant]
     Indication: BLOOD CHOLESTEROL INCREASED
     Dosage: 40MG PER DAY
     Route: 048
     Dates: start: 20040815

REACTIONS (6)
  - CHEST PAIN [None]
  - CHILLS [None]
  - CIRCULATORY COLLAPSE [None]
  - DYSPNOEA [None]
  - HEADACHE [None]
  - PARAESTHESIA [None]
